FAERS Safety Report 11707390 (Version 1)
Quarter: 2015Q4

REPORT INFORMATION
  Report Type: Spontaneous
  Country: US (occurrence: US)
  Receive Date: 20151104
  Receipt Date: 20151104
  Transmission Date: 20160304
  Serious: No
  Sender: FDA-Public Use
  Company Number: US-ELI_LILLY_AND_COMPANY-US201101000696

PATIENT
  Sex: Female

DRUGS (6)
  1. FORTEO [Suspect]
     Active Substance: TERIPARATIDE
     Dosage: 20 UG, OTHER
     Route: 065
  2. INSULIN [Concomitant]
     Active Substance: INSULIN NOS
     Indication: DIABETES MELLITUS
  3. CALCIUM [Concomitant]
     Active Substance: CALCIUM
     Dosage: UNK
     Dates: end: 20110319
  4. CALCIUM [Concomitant]
     Active Substance: CALCIUM
  5. FORTEO [Suspect]
     Active Substance: TERIPARATIDE
     Dosage: 20 UG, DAILY (1/D)
     Route: 065
     Dates: start: 20110323
  6. FORTEO [Suspect]
     Active Substance: TERIPARATIDE
     Indication: OSTEOPOROSIS
     Dosage: 20 UG, DAILY (1/D)
     Route: 065
     Dates: start: 200911, end: 20110319

REACTIONS (2)
  - Inappropriate schedule of drug administration [Unknown]
  - Blood calcium increased [Not Recovered/Not Resolved]
